FAERS Safety Report 7938792-7 (Version None)
Quarter: 2011Q4

REPORT INFORMATION
  Report Type: 
  Country: None (occurrence: None)
  Receive Date: 20111124
  Receipt Date: 20111118
  Transmission Date: 20120403
  Serious: No
  Sender: FDA-Public Use
  Company Number: US-BIOGENIDEC-2011BI044204

PATIENT
  Age: 32 Year
  Sex: Female

DRUGS (3)
  1. TYSABRI [Suspect]
     Indication: MULTIPLE SCLEROSIS
     Route: 042
     Dates: start: 20111012
  2. TYSABRI [Suspect]
     Route: 042
     Dates: start: 20081204, end: 20090303
  3. TYSABRI [Suspect]
     Route: 042
     Dates: start: 20070924, end: 20080320

REACTIONS (3)
  - HEART RATE INCREASED [None]
  - HEPATIC ENZYME INCREASED [None]
  - ELECTROCARDIOGRAM ST SEGMENT DEPRESSION [None]
